FAERS Safety Report 4839654-4 (Version None)
Quarter: 2005Q4

REPORT INFORMATION
  Report Type: 
  Country: None (occurrence: None)
  Receive Date: 20051129
  Receipt Date: 20050510
  Transmission Date: 20060501
  Serious: No
  Sender: FDA-Public Use
  Company Number: US-GLAXOSMITHKLINE-A0557952A

PATIENT
  Sex: Male

DRUGS (6)
  1. WELLBUTRIN SR [Suspect]
     Indication: ATTENTION DEFICIT/HYPERACTIVITY DISORDER
     Dosage: 300MG TWICE PER DAY
     Route: 048
  2. CYMBALTA [Concomitant]
     Route: 065
  3. FOLGARD [Concomitant]
  4. TOPROL-XL [Concomitant]
  5. ANDROGEL [Concomitant]
     Route: 065
  6. DIAVAN [Concomitant]
     Route: 065

REACTIONS (3)
  - DRY MOUTH [None]
  - HYPERHIDROSIS [None]
  - TREMOR [None]
